FAERS Safety Report 13857173 (Version 1)
Quarter: 2017Q3

REPORT INFORMATION
  Report Type: Spontaneous
  Country: US (occurrence: US)
  Receive Date: 20170810
  Receipt Date: 20170810
  Transmission Date: 20171127
  Serious: No
  Sender: FDA-Public Use
  Company Number: US-ROCHE-1324905

PATIENT
  Age: 40 Year
  Sex: Female
  Weight: 81.72 kg

DRUGS (4)
  1. ADVIL [Concomitant]
     Active Substance: IBUPROFEN
  2. NEURONTIN [Concomitant]
     Active Substance: GABAPENTIN
     Route: 048
  3. TAMIFLU [Suspect]
     Active Substance: OSELTAMIVIR PHOSPHATE
     Indication: INFLUENZA
     Route: 048
     Dates: start: 20131210, end: 20131215
  4. TAMIFLU [Suspect]
     Active Substance: OSELTAMIVIR PHOSPHATE
     Indication: INFLUENZA

REACTIONS (7)
  - Dry skin [Unknown]
  - Dry mouth [Unknown]
  - Rash [Unknown]
  - Rash vesicular [Unknown]
  - Diarrhoea [Unknown]
  - Decreased appetite [Unknown]
  - Rash macular [Unknown]

NARRATIVE: CASE EVENT DATE: 20131217
